FAERS Safety Report 5358189-6 (Version None)
Quarter: 2007Q2

REPORT INFORMATION
  Report Type: 
  Country: None (occurrence: None)
  Receive Date: 20070530
  Receipt Date: 20061027
  Transmission Date: 20071010
  Serious: Yes (Other)
  Sender: FDA-Public Use
  Company Number: US200605002735

PATIENT
  Age: 54 Year
  Sex: Female
  Weight: 99.8 kg

DRUGS (6)
  1. ZYPREXA [Suspect]
     Dosage: 5 MG
     Dates: start: 19950601, end: 20050801
  2. ARIPIPRAZOLE [Concomitant]
  3. ZIPRASIDONE HCL [Concomitant]
  4. CHLORPROMAZINE [Concomitant]
  5. PERPHENAZINE [Concomitant]
  6. FLUOXETINE [Concomitant]

REACTIONS (5)
  - BLOOD CHOLESTEROL INCREASED [None]
  - BLOOD TRIGLYCERIDES INCREASED [None]
  - DIABETES MELLITUS [None]
  - DIABETIC KETOACIDOSIS [None]
  - METABOLIC DISORDER [None]
